FAERS Safety Report 7079376-5 (Version None)
Quarter: 2010Q4

REPORT INFORMATION
  Report Type: 
  Country: None (occurrence: None)
  Receive Date: 20101102
  Receipt Date: 20101019
  Transmission Date: 20110411
  Serious: Yes (Hospitalization)
  Sender: FDA-Public Use
  Company Number: DE-TEVA-225405ISR

PATIENT
  Sex: Female
  Weight: 59.7 kg

DRUGS (4)
  1. ETOPOSIDE [Suspect]
     Indication: ACUTE LYMPHOCYTIC LEUKAEMIA
     Route: 042
     Dates: start: 20100101, end: 20100101
  2. TREOSULFAN [Suspect]
     Route: 042
     Dates: start: 20091229, end: 20091231
  3. ANTI-THYMOCYTE GLOBULIN NOS [Suspect]
     Indication: ACUTE LYMPHOCYTIC LEUKAEMIA
     Route: 042
     Dates: start: 20100102, end: 20100104
  4. CYCLOPHOSPHAMIDE [Suspect]
     Indication: ACUTE LYMPHOCYTIC LEUKAEMIA
     Route: 042
     Dates: start: 20100102, end: 20100103

REACTIONS (1)
  - CYSTITIS HAEMORRHAGIC [None]
